FAERS Safety Report 7350779-4 (Version None)
Quarter: 2011Q1

REPORT INFORMATION
  Report Type: 
  Country: None (occurrence: None)
  Receive Date: 20110304
  Receipt Date: 20110215
  Transmission Date: 20110831
  Serious: Yes (Hospitalization)
  Sender: FDA-Public Use
  Company Number: UTC-005200

PATIENT
  Sex: Female

DRUGS (3)
  1. REMODULIN [Suspect]
     Indication: PULMONARY ARTERIAL HYPERTENSION
     Dosage: 33.12 UG/KG (0.023 UG/KG,1 IN 1 MIN), SUBCUTANEOUS
     Route: 058
     Dates: start: 20101006
  2. ADCIRCA [Concomitant]
  3. DIURETICS (DIURETICS) [Concomitant]

REACTIONS (4)
  - UPPER RESPIRATORY TRACT INFECTION [None]
  - NAUSEA [None]
  - PAIN [None]
  - VOMITING [None]
